FAERS Safety Report 7142700-9 (Version None)
Quarter: 2010Q4

REPORT INFORMATION
  Report Type: 
  Country: None (occurrence: None)
  Receive Date: 20101207
  Receipt Date: 20101201
  Transmission Date: 20110411
  Serious: Yes (Other)
  Sender: FDA-Public Use
  Company Number: US-AMGEN-USASP2010007380

PATIENT

DRUGS (1)
  1. NPLATE [Suspect]
     Indication: IDIOPATHIC THROMBOCYTOPENIC PURPURA
     Dosage: 70 A?G, QWK
     Route: 058
     Dates: start: 20091214, end: 20100427

REACTIONS (2)
  - METRORRHAGIA [None]
  - PLATELET COUNT DECREASED [None]
